FAERS Safety Report 9395587 (Version 3)
Quarter: 2014Q3

REPORT INFORMATION
  Report Type: Spontaneous
  Country: DK (occurrence: DK)
  Receive Date: 20130711
  Receipt Date: 20140715
  Transmission Date: 20150326
  Serious: Yes (Death, Hospitalization)
  Sender: FDA-Public Use
  Company Number: PHHY2013DK072533

PATIENT
  Sex: Male

DRUGS (4)
  1. DICILLIN [Suspect]
     Active Substance: DICLOXACILLIN SODIUM
     Indication: INFECTION
     Dosage: 500 MG, TID
     Route: 048
     Dates: start: 20120119
  2. CIPROFLOXACIN. [Suspect]
     Active Substance: CIPROFLOXACIN
     Indication: INFECTION
     Dosage: 500 MG, BID
     Route: 048
     Dates: start: 20120119
  3. ZINACEF [Suspect]
     Active Substance: CEFUROXIME SODIUM
     Indication: INFECTION
     Dosage: 3000 MG, 3 INJECTIONS TILL 06 FEB 2012 AND LATER 1500 MG, 3 INJECTIONS
     Route: 042
     Dates: start: 20120130, end: 20120224
  4. FENYTOIN DAK [Suspect]
     Active Substance: PHENYTOIN

REACTIONS (1)
  - General physical health deterioration [Fatal]
